FAERS Safety Report 4606713-0 (Version None)
Quarter: 2005Q1

REPORT INFORMATION
  Report Type: 
  Country: None (occurrence: None)
  Receive Date: 20050311
  Receipt Date: 20050224
  Transmission Date: 20050727
  Serious: Yes (Other)
  Sender: FDA-Public Use
  Company Number: 2005S1000785

PATIENT
  Age: 77 Year
  Sex: Male

DRUGS (2)
  1. DILTIAZEM HYDROCHLORIDE [Suspect]
  2. METOPROLOL TARTRATE [Suspect]

REACTIONS (1)
  - UNEVALUABLE EVENT [None]
